FAERS Safety Report 5032784-6 (Version None)
Quarter: 2006Q2

REPORT INFORMATION
  Report Type: 
  Country: None (occurrence: None)
  Receive Date: 20060620
  Receipt Date: 20060620
  Transmission Date: 20061013
  Serious: Yes (Life-Threatening, Hospitalization)
  Sender: FDA-Public Use
  Company Number: None

PATIENT
  Age: 50 Year
  Sex: Male

DRUGS (20)
  1. GABAPENTIN [Suspect]
     Indication: CONVULSION
     Dosage: 300 MG THREE TIMES DAILY PO
     Route: 048
     Dates: start: 20050702, end: 20050704
  2. TAPAZOLE [Concomitant]
  3. GOREG [Concomitant]
  4. MORPHINE [Concomitant]
  5. MORPHINE [Concomitant]
  6. PERCOCET [Concomitant]
  7. TOPROL-XL [Concomitant]
  8. LISINOPRIL [Concomitant]
  9. METOCLOPRAMIDE [Concomitant]
  10. HYDROCONE 5/500 -APAP [Concomitant]
  11. NIFEREX [Concomitant]
  12. INSULIN [Concomitant]
  13. TRAZODONE HCL [Concomitant]
  14. ERYTHROPOETIN [Concomitant]
  15. CEFEPIME [Concomitant]
  16. METRONIDAZOLE [Concomitant]
  17. VANCOMYCIN [Concomitant]
  18. GENTAMICIN [Concomitant]
  19. ONDANSETRON HCL [Concomitant]
  20. SEVELAMAR [Concomitant]

REACTIONS (4)
  - CHEYNE-STOKES RESPIRATION [None]
  - LOSS OF CONSCIOUSNESS [None]
  - RESPIRATORY ARREST [None]
  - RESPIRATORY DISTRESS [None]
